FAERS Safety Report 20312694 (Version 1)
Quarter: 2022Q1

REPORT INFORMATION
  Report Type: Spontaneous
  Country: US (occurrence: US)
  Receive Date: 20220108
  Receipt Date: 20220108
  Transmission Date: 20220423
  Serious: Yes (Death, Other)
  Sender: FDA-Public Use
  Company Number: US-PURDUE-USA-2020-0280374

PATIENT
  Sex: Female

DRUGS (1)
  1. OXYCONTIN [Suspect]
     Active Substance: OXYCODONE HYDROCHLORIDE
     Indication: Ankle fracture
     Dosage: UNKNOWN
     Route: 048

REACTIONS (2)
  - Drug dependence [Fatal]
  - Overdose [Unknown]

NARRATIVE: CASE EVENT DATE: 20141112
